FAERS Safety Report 5896543-4 (Version None)
Quarter: 2008Q3

REPORT INFORMATION
  Report Type: 
  Country: None (occurrence: None)
  Receive Date: 20080924
  Receipt Date: 20070904
  Transmission Date: 20090109
  Serious: Yes (Other)
  Sender: FDA-Public Use
  Company Number: US-BAYER-200712495BWH

PATIENT
  Age: 45 Year
  Sex: Female

DRUGS (2)
  1. AVELOX [Suspect]
     Indication: SINUS DISORDER
     Dosage: UNIT DOSE: 400 MG
     Route: 048
     Dates: start: 20070721
  2. CLARINEX D [Concomitant]
     Indication: SINUS DISORDER

REACTIONS (1)
  - ANAPHYLACTIC REACTION [None]
